FAERS Safety Report 7416807-2 (Version None)
Quarter: 2011Q1

REPORT INFORMATION
  Report Type: 
  Country: None (occurrence: None)
  Receive Date: 20110302
  Receipt Date: 20101026
  Transmission Date: 20110831
  Serious: No
  Sender: FDA-Public Use
  Company Number: 019674

PATIENT
  Sex: Female
  Weight: 101 kg

DRUGS (8)
  1. ALPRAZOLAM [Concomitant]
  2. VICOPROFEN [Concomitant]
  3. FLEXERIL [Concomitant]
  4. CIMZIA [Suspect]
     Indication: CROHN'S DISEASE
     Dosage: 400 MG 1X/MONTH SUBCUTANEOUS, SUBCUTANEOUS, 400 MG 1X/MONTH SUBCUTANEOUS
     Route: 058
     Dates: start: 20101024
  5. CIMZIA [Suspect]
     Indication: CROHN'S DISEASE
     Dosage: 400 MG 1X/MONTH SUBCUTANEOUS, SUBCUTANEOUS, 400 MG 1X/MONTH SUBCUTANEOUS
     Route: 058
     Dates: start: 20100101, end: 20100901
  6. CIMZIA [Suspect]
     Indication: CROHN'S DISEASE
     Dosage: 400 MG 1X/MONTH SUBCUTANEOUS, SUBCUTANEOUS, 400 MG 1X/MONTH SUBCUTANEOUS
     Route: 058
     Dates: start: 20100301, end: 20100803
  7. HYDROCHLOROTHIAZIDE [Concomitant]
  8. CELEXA [Concomitant]

REACTIONS (11)
  - ABSCESS LIMB [None]
  - BLOOD PRESSURE INCREASED [None]
  - CROHN'S DISEASE [None]
  - FUNGAL INFECTION [None]
  - SUBCUTANEOUS ABSCESS [None]
  - EYE ABSCESS [None]
  - PYREXIA [None]
  - WEIGHT DECREASED [None]
  - OEDEMA PERIPHERAL [None]
  - URINARY TRACT INFECTION [None]
  - WEIGHT INCREASED [None]
